FAERS Safety Report 5352468-4 (Version None)
Quarter: 2007Q2

REPORT INFORMATION
  Report Type: 
  Country: None (occurrence: None)
  Receive Date: 20070611
  Receipt Date: 20070530
  Transmission Date: 20071010
  Serious: Yes (Other)
  Sender: FDA-Public Use
  Company Number: B0464108A

PATIENT
  Age: 21 Year
  Sex: Female
  Weight: 49 kg

DRUGS (5)
  1. SERETIDE DISKUS [Suspect]
     Indication: ASTHMA
     Dosage: 1PUFF TWICE PER DAY
     Route: 055
     Dates: start: 20030101
  2. CORTICOIDS [Suspect]
     Indication: ASTHMA
     Route: 048
  3. NASACORT [Suspect]
     Indication: RHINITIS ALLERGIC
     Dosage: 2UNIT IN THE MORNING
     Route: 045
     Dates: start: 20030101
  4. NEXIUM [Concomitant]
     Indication: ILL-DEFINED DISORDER
     Dosage: 20MG PER DAY
     Route: 048
     Dates: start: 20061001
  5. DESLORATADINE [Concomitant]
     Indication: HYPERSENSITIVITY
     Dosage: 1TAB PER DAY
     Route: 048

REACTIONS (5)
  - ADRENAL INSUFFICIENCY [None]
  - ASTHENIA [None]
  - BLOOD CORTISOL DECREASED [None]
  - HIRSUTISM [None]
  - HYPERADRENOCORTICISM [None]
